FAERS Safety Report 17517008 (Version 1)
Quarter: 2020Q1

REPORT INFORMATION
  Report Type: Spontaneous
  Country: IN (occurrence: IN)
  Receive Date: 20200309
  Receipt Date: 20200309
  Transmission Date: 20200409
  Serious: Yes (Death, Life-Threatening, Hospitalization, Disabling)
  Sender: FDA-Public Use
  Company Number: IN-AKRON, INC.-2081405

PATIENT
  Age: 70 Year
  Sex: Male

DRUGS (1)
  1. DICLOFENAC SODIUM OPHTHALMIC SOLUTION [Suspect]
     Active Substance: DICLOFENAC SODIUM
     Indication: DISEASE PRODROMAL STAGE
     Route: 048

REACTIONS (3)
  - Toxic epidermal necrolysis [Fatal]
  - Death [Fatal]
  - Panophthalmitis [Fatal]
